FAERS Safety Report 5578961-7 (Version None)
Quarter: 2008Q1

REPORT INFORMATION
  Report Type: 
  Country: None (occurrence: None)
  Receive Date: 20080102
  Receipt Date: 20071207
  Transmission Date: 20080703
  Serious: No
  Sender: FDA-Public Use
  Company Number: US-BAYER-200716799NA

PATIENT
  Age: 65 Year
  Sex: Female
  Weight: 50 kg

DRUGS (9)
  1. CIPRO [Suspect]
     Indication: DRUG USE FOR UNKNOWN INDICATION
     Route: 048
     Dates: start: 20070810, end: 20070815
  2. TEGRETOL [Suspect]
     Indication: BIPOLAR DISORDER
     Dates: start: 20070815, end: 20070927
  3. LAMICTAL [Suspect]
     Indication: BIPOLAR DISORDER
     Dates: start: 20070718, end: 20070724
  4. LAMICTAL [Suspect]
     Dates: start: 20070724, end: 20070820
  5. LAMICTAL [Suspect]
     Dates: start: 20070820, end: 20070828
  6. NORFLEX [Concomitant]
     Dates: start: 20070813
  7. XANAX [Concomitant]
     Dates: start: 20070801
  8. NAVANE [Concomitant]
     Dates: start: 20070822, end: 20070922
  9. PREMARIN [Concomitant]
     Dates: start: 20070222

REACTIONS (6)
  - HEPATIC ENZYME INCREASED [None]
  - PYREXIA [None]
  - RASH [None]
  - RASH PAPULAR [None]
  - SKIN LESION [None]
  - SWELLING FACE [None]
